FAERS Safety Report 6680244-9 (Version None)
Quarter: 2010Q2

REPORT INFORMATION
  Report Type: 
  Country: None (occurrence: None)
  Receive Date: 20100409
  Receipt Date: 20100401
  Transmission Date: 20101027
  Serious: Yes (Death, Hospitalization)
  Sender: FDA-Public Use
  Company Number: 97755

PATIENT
  Age: 96 Year
  Sex: Female

DRUGS (1)
  1. ADRIAMYCIN PFS [Suspect]
     Indication: DIFFUSE LARGE B-CELL LYMPHOMA
     Dosage: 25MG/M2

REACTIONS (10)
  - ASPIRATION [None]
  - ATRIAL FIBRILLATION [None]
  - BRONCHOPNEUMOPATHY [None]
  - CELLULITIS GANGRENOUS [None]
  - CONDITION AGGRAVATED [None]
  - EXTRAVASATION [None]
  - LUNG DISORDER [None]
  - MYOCARDIAL INFARCTION [None]
  - PAROTITIS [None]
  - SINUSITIS BACTERIAL [None]
